FAERS Safety Report 8346462-9 (Version None)
Quarter: 2012Q2

REPORT INFORMATION
  Report Type: 
  Country: None (occurrence: None)
  Receive Date: 20120509
  Receipt Date: 20120503
  Transmission Date: 20120825
  Serious: Yes (Hospitalization)
  Sender: FDA-Public Use
  Company Number: IT-PFIZER INC-2012109406

PATIENT
  Age: 72 Year
  Sex: Male

DRUGS (1)
  1. UNASYN [Suspect]
     Indication: SURGERY
     Dosage: 3 G, 1X/DAY
     Route: 042
     Dates: start: 20120420, end: 20120420

REACTIONS (4)
  - RASH [None]
  - SHOCK [None]
  - HYPOTENSION [None]
  - BRADYCARDIA [None]
